FAERS Safety Report 16657298 (Version 2)
Quarter: 2019Q4

REPORT INFORMATION
  Report Type: Spontaneous
  Country: US (occurrence: US)
  Receive Date: 20190801
  Receipt Date: 20191004
  Transmission Date: 20200122
  Serious: No
  Sender: FDA-Public Use
  Company Number: US-SA-2019SA205602

PATIENT
  Age: 61 Year
  Sex: Female

DRUGS (1)
  1. DUPIXENT [Suspect]
     Active Substance: DUPILUMAB
     Indication: DERMATITIS ATOPIC
     Dosage: 300 MG, QOW
     Route: 058
     Dates: start: 2019

REACTIONS (7)
  - Stress [Unknown]
  - Therapeutic product effect decreased [Unknown]
  - Skin weeping [Unknown]
  - Photosensitivity reaction [Unknown]
  - Condition aggravated [Unknown]
  - Burning sensation [Unknown]
  - Urticaria [Unknown]

NARRATIVE: CASE EVENT DATE: 2019
